FAERS Safety Report 20405391 (Version 1)
Quarter: 2022Q1

REPORT INFORMATION
  Report Type: Spontaneous
  Country: US (occurrence: None)
  Receive Date: 20220129
  Receipt Date: 20220129
  Transmission Date: 20220423
  Serious: Yes (Disabling)
  Sender: FDA-Public Use
  Company Number: None

PATIENT
  Age: 64 Year
  Sex: Female
  Weight: 62.1 kg

DRUGS (30)
  1. BACLOFEN [Suspect]
     Active Substance: BACLOFEN
     Indication: Muscle spasticity
     Dosage: OTHER ROUTE : INTRATHECAL CATHETER/PUMP;?
     Route: 050
  2. ACETAMINOPHEN [Concomitant]
     Active Substance: ACETAMINOPHEN
  3. AMOXICILLIN [Concomitant]
     Active Substance: AMOXICILLIN
  4. CELECOXIB [Concomitant]
     Active Substance: CELECOXIB
  5. DICLOFENAC [Concomitant]
  6. FLUTICASONE [Concomitant]
     Active Substance: FLUTICASONE
  7. IBANDRONATE SODIUM [Concomitant]
     Active Substance: IBANDRONATE SODIUM
  8. IPRATROPIUM [Concomitant]
     Active Substance: IPRATROPIUM
  9. MONTELUKAST [Concomitant]
     Active Substance: MONTELUKAST SODIUM
  10. OXYCODONE [Concomitant]
     Active Substance: OXYCODONE
  11. PANTOPRAZOLE [Concomitant]
     Active Substance: PANTOPRAZOLE
  12. PREGABALIN [Concomitant]
     Active Substance: PREGABALIN
  13. SENNA [Concomitant]
     Active Substance: SENNA LEAF\SENNOSIDES\SENNOSIDES A AND B
  14. TIZANIDINE [Concomitant]
     Active Substance: TIZANIDINE
  15. XYLOCAINE [Concomitant]
     Active Substance: LIDOCAINE HYDROCHLORIDE
  16. FENTANYL [Concomitant]
     Active Substance: FENTANYL
  17. DILAUDID [Concomitant]
     Active Substance: HYDROMORPHONE HYDROCHLORIDE
  18. BACLOFEN [Concomitant]
     Active Substance: BACLOFEN
  19. BUPIVACAINE [Concomitant]
     Active Substance: BUPIVACAINE
  20. MAGNESIUM [Concomitant]
     Active Substance: MAGNESIUM
  21. CALCIUM [Concomitant]
     Active Substance: CALCIUM
  22. VITAMIN C [Concomitant]
     Active Substance: ASCORBIC ACID
  23. VITAMIN D3 [Concomitant]
     Active Substance: CHOLECALCIFEROL
  24. VITAMIN B-COMPLEX [Concomitant]
     Active Substance: DEXPANTHENOL\NIACINAMIDE\PYRIDOXINE HYDROCHLORIDE\RIBOFLAVIN 5^-PHOSPHATE SODIUM\THIAMINE HYDROCHLOR
  25. MATURE MVI [Concomitant]
  26. HERBALS\TURMERIC [Concomitant]
     Active Substance: HERBALS\TURMERIC
  27. CRANBERRY [Concomitant]
     Active Substance: CRANBERRY
  28. CARTILAGE/BORON/HYALURONIC ACID SUPPLEMENT [Concomitant]
  29. CITRUCEL [Concomitant]
     Active Substance: METHYLCELLULOSE (4000 MPA.S)
  30. OXYMETAZOLINE [Concomitant]
     Active Substance: OXYMETAZOLINE

REACTIONS (15)
  - Pain in extremity [None]
  - Muscular weakness [None]
  - Oedema peripheral [None]
  - Hyporeflexia [None]
  - Back pain [None]
  - Musculoskeletal pain [None]
  - Pain in extremity [None]
  - Asthenia [None]
  - Monoparesis [None]
  - Urinary incontinence [None]
  - Anal incontinence [None]
  - Muscle spasms [None]
  - Neuralgia [None]
  - Therapy change [None]
  - Injection related reaction [None]

NARRATIVE: CASE EVENT DATE: 20220125
